FAERS Safety Report 5810390-0 (Version None)
Quarter: 2008Q3

REPORT INFORMATION
  Report Type: 
  Country: None (occurrence: None)
  Receive Date: 20080715
  Receipt Date: 20080703
  Transmission Date: 20090109
  Serious: Yes (Life-Threatening, Congenital Anomaly)
  Sender: FDA-Public Use
  Company Number: AU-ROCHE-573880

PATIENT
  Sex: Male
  Weight: 2.4 kg

DRUGS (3)
  1. ISOTRETINOIN [Suspect]
     Indication: ACNE
     Route: 064
  2. AMPHETAMINE SULFATE [Suspect]
     Indication: DRUG USE FOR UNKNOWN INDICATION
     Route: 064
  3. CONTRACEPTIVE [Concomitant]
     Dosage: DOSE REPORTED: 1 DOSE UNSPEC. DAILY.

REACTIONS (9)
  - ANOMALY OF EXTERNAL EAR CONGENITAL [None]
  - CLEFT PALATE [None]
  - CONGENITAL NOSE MALFORMATION [None]
  - DOUBLE OUTLET RIGHT VENTRICLE [None]
  - FACIAL PALSY [None]
  - HYPERTELORISM OF ORBIT [None]
  - RESPIRATORY DISORDER [None]
  - TACHYCARDIA [None]
  - VENTRICULAR SEPTAL DEFECT [None]
